FAERS Safety Report 7424677-1 (Version None)
Quarter: 2011Q2

REPORT INFORMATION
  Report Type: 
  Country: None (occurrence: None)
  Receive Date: 20110419
  Receipt Date: 20110403
  Transmission Date: 20111010
  Serious: Yes (Life-Threatening, Hospitalization, Other)
  Sender: FDA-Public Use
  Company Number: US-BAYER-201029732NA

PATIENT
  Age: 30 Year
  Sex: Female
  Weight: 51.701 kg

DRUGS (5)
  1. YASMIN [Suspect]
     Indication: CONTRACEPTION
     Dosage: UNK
     Route: 048
     Dates: start: 20030307, end: 20070101
  2. YAZ [Suspect]
     Indication: CONTRACEPTION
     Dosage: UNK
     Route: 048
     Dates: start: 20070101, end: 20080603
  3. YASMIN [Suspect]
     Indication: MENSTRUATION IRREGULAR
  4. YAZ [Suspect]
     Indication: MENSTRUATION IRREGULAR
  5. ZYRTEC [Concomitant]
     Indication: MULTIPLE ALLERGIES
     Dosage: 10 MG, QD
     Dates: start: 20020101, end: 20090101

REACTIONS (3)
  - ACUTE MYOCARDIAL INFARCTION [None]
  - CHEST PAIN [None]
  - ANGINA PECTORIS [None]
